FAERS Safety Report 14654658 (Version 1)
Quarter: 2018Q1

REPORT INFORMATION
  Report Type: Spontaneous
  Country: US (occurrence: US)
  Receive Date: 20180319
  Receipt Date: 20180319
  Transmission Date: 20180509
  Serious: Yes (Other)
  Sender: FDA-Public Use
  Company Number: US-AMGEN-USASP2018035728

PATIENT
  Age: 36 Year
  Sex: Female

DRUGS (4)
  1. DARBEPOETIN ALFA [Suspect]
     Active Substance: DARBEPOETIN ALFA
     Indication: ANAEMIA OF CHRONIC DISEASE
  2. IRON [Concomitant]
     Active Substance: IRON
     Indication: ANAEMIA OF CHRONIC DISEASE
     Route: 042
  3. DARBEPOETIN ALFA [Suspect]
     Active Substance: DARBEPOETIN ALFA
     Indication: IRON DEFICIENCY ANAEMIA
     Route: 058
  4. IRON [Concomitant]
     Active Substance: IRON
     Indication: IRON DEFICIENCY ANAEMIA

REACTIONS (3)
  - Melaena [Recovered/Resolved]
  - Off label use [Unknown]
  - Fatigue [Unknown]
